FAERS Safety Report 13900201 (Version 1)
Quarter: 2017Q3

REPORT INFORMATION
  Report Type: Spontaneous
  Country: US (occurrence: None)
  Receive Date: 20170824
  Receipt Date: 20170824
  Transmission Date: 20171127
  Serious: Yes (Hospitalization)
  Sender: FDA-Public Use
  Company Number: None

PATIENT
  Age: 35 Year
  Sex: Male

DRUGS (1)
  1. TEMOZOLOMIDE CAP 100MG [Suspect]
     Active Substance: TEMOZOLOMIDE

REACTIONS (4)
  - Asthenia [None]
  - Stress [None]
  - Neoplasm malignant [None]
  - Seizure [None]

NARRATIVE: CASE EVENT DATE: 20170730
